FAERS Safety Report 10233599 (Version 1)
Quarter: 2014Q2

REPORT INFORMATION
  Report Type: Spontaneous
  Country: IT (occurrence: None)
  Receive Date: 20140610
  Receipt Date: 20140610
  Transmission Date: 20141212
  Serious: Yes (Other)
  Sender: FDA-Public Use
  Company Number: 2014HINLIT0526

PATIENT
  Age: 55 Year
  Sex: Male

DRUGS (2)
  1. LAMIVUDINE (LAMIVUDINE) UNKNOWN [Suspect]
     Indication: HEPATITIS B
     Dates: start: 2005
  2. ADOFOVIR [Suspect]
     Indication: HEPATITIS B
     Dates: start: 2008

REACTIONS (1)
  - Hepatocellular carcinoma [None]
